FAERS Safety Report 4400837-9 (Version None)
Quarter: 2004Q3

REPORT INFORMATION
  Report Type: 
  Country: None (occurrence: None)
  Receive Date: 20040907
  Receipt Date: 20030701
  Transmission Date: 20050211
  Serious: No
  Sender: FDA-Public Use
  Company Number: US-BRISTOL-MYERS SQUIBB COMPANY-12315750

PATIENT
  Age: 76 Year
  Sex: Male
  Weight: 73 kg

DRUGS (1)
  1. COUMADIN [Suspect]
     Indication: CORONARY ARTERY SURGERY
     Dosage: WITHDRAWN WHEN HAD KIDNEY STONE, THEN RESTARTED
     Route: 048

REACTIONS (2)
  - DYSGEUSIA [None]
  - NEPHROLITHIASIS [None]
